FAERS Safety Report 7642036-3 (Version None)
Quarter: 2011Q3

REPORT INFORMATION
  Report Type: 
  Country: None (occurrence: None)
  Receive Date: 20110728
  Receipt Date: 20110718
  Transmission Date: 20111222
  Serious: No
  Sender: FDA-Public Use
  Company Number: US-MERCK-1105USA01492

PATIENT
  Age: 55 Year
  Sex: Female
  Weight: 113 kg

DRUGS (11)
  1. METFORMIN [Concomitant]
     Route: 065
  2. BACLOFEN [Concomitant]
     Route: 065
  3. ZOCOR [Suspect]
     Indication: BLOOD CHOLESTEROL INCREASED
     Route: 048
     Dates: start: 20110101, end: 20110509
  4. LYRICA [Concomitant]
     Route: 065
  5. COMBIGAN [Concomitant]
     Dosage: 1 DROP EACH EYE
     Route: 065
  6. VYTORIN [Suspect]
     Route: 048
     Dates: start: 20110602
  7. ROPINIROLE [Concomitant]
     Route: 065
  8. TRAMADOL HYDROCHLORIDE [Concomitant]
     Route: 065
  9. INDOMETHACIN [Concomitant]
     Route: 065
  10. ESTRADIOL [Concomitant]
     Route: 065
  11. VYTORIN [Suspect]
     Indication: BLOOD CHOLESTEROL INCREASED
     Route: 048
     Dates: start: 20080501, end: 20110101

REACTIONS (1)
  - BLOOD CHOLESTEROL INCREASED [None]
